FAERS Safety Report 25851592 (Version 1)
Quarter: 2025Q3

REPORT INFORMATION
  Report Type: Spontaneous
  Country: US (occurrence: None)
  Receive Date: 20250925
  Receipt Date: 20250925
  Transmission Date: 20251021
  Serious: Yes (unspecified)
  Sender: FDA-CTU
  Company Number: None

PATIENT
  Age: 70 Year
  Sex: Female
  Weight: 80 kg

DRUGS (2)
  1. GAMUNEX-C [Suspect]
     Active Substance: HUMAN IMMUNOGLOBULIN G
     Indication: Polymyositis
     Route: 041
  2. GAMUNEX-C [Suspect]
     Active Substance: HUMAN IMMUNOGLOBULIN G
     Indication: Myopathy

REACTIONS (7)
  - Erythema [None]
  - Dyspnoea [None]
  - Pruritus [None]
  - Chest discomfort [None]
  - Skin irritation [None]
  - Blood pressure increased [None]
  - Liver function test increased [None]

NARRATIVE: CASE EVENT DATE: 20250903
